FAERS Safety Report 4944168-7 (Version None)
Quarter: 2006Q1

REPORT INFORMATION
  Report Type: 
  Country: None (occurrence: None)
  Receive Date: 20060315
  Receipt Date: 20051020
  Transmission Date: 20060701
  Serious: Yes (Hospitalization)
  Sender: FDA-Public Use
  Company Number: US-BRISTOL-MYERS SQUIBB COMPANY-13158241

PATIENT
  Age: 64 Year
  Sex: Male

DRUGS (4)
  1. ERBITUX [Suspect]
     Dosage: 10 MG TEST DOSE FOLLOWED BY 268 MG OVER 2 HOURS.  REACTION OCCURRED AFTER 1 HOUR.
     Route: 042
     Dates: start: 20051017, end: 20051017
  2. CIMETIDINE [Concomitant]
     Route: 042
  3. DEXAMETHASONE [Concomitant]
     Route: 042
  4. DIPHENHYDRAMINE [Concomitant]
     Route: 042

REACTIONS (5)
  - BACK PAIN [None]
  - CHEST DISCOMFORT [None]
  - CHILLS [None]
  - ERYTHEMA [None]
  - PRURITUS [None]
